FAERS Safety Report 16224051 (Version 2)
Quarter: 2019Q2

REPORT INFORMATION
  Report Type: Spontaneous
  Country: US (occurrence: US)
  Receive Date: 20190422
  Receipt Date: 20190612
  Transmission Date: 20190711
  Serious: Yes (Death)
  Sender: FDA-Public Use
  Company Number: US-OTSUKA-2019_013360

PATIENT
  Age: 53 Year
  Sex: Female

DRUGS (1)
  1. SAMSCA [Suspect]
     Active Substance: TOLVAPTAN
     Indication: HYPONATRAEMIA
     Dosage: 15 MG, QOD
     Route: 048
     Dates: start: 20180518, end: 20190414

REACTIONS (2)
  - Wrong technique in product usage process [Unknown]
  - Death [Fatal]

NARRATIVE: CASE EVENT DATE: 20190414
